FAERS Safety Report 4928967-3 (Version None)
Quarter: 2006Q1

REPORT INFORMATION
  Report Type: 
  Country: None (occurrence: None)
  Receive Date: 20060301
  Receipt Date: 20060213
  Transmission Date: 20060701
  Serious: Yes (Hospitalization)
  Sender: FDA-Public Use
  Company Number: J200600389

PATIENT
  Age: 59 Year
  Sex: Male

DRUGS (3)
  1. SAWACILLIN [Suspect]
     Dosage: 3TAB TWICE PER DAY
     Route: 048
     Dates: start: 20060104, end: 20060110
  2. TAKEPRON [Suspect]
     Route: 048
     Dates: start: 20060104, end: 20060110
  3. CLARITHROMYCIN [Suspect]
     Route: 048
     Dates: start: 20060104, end: 20060110

REACTIONS (4)
  - ASTHENIA [None]
  - CHILLS [None]
  - HEPATIC FUNCTION ABNORMAL [None]
  - PYREXIA [None]
